FAERS Safety Report 21075129 (Version 1)
Quarter: 2022Q3

REPORT INFORMATION
  Report Type: Spontaneous
  Country: US (occurrence: None)
  Receive Date: 20220712
  Receipt Date: 20220712
  Transmission Date: 20221027
  Serious: Yes (Disabling)
  Sender: FDA-Public Use
  Company Number: None

PATIENT
  Age: 64 Year
  Sex: Male
  Weight: 117 kg

DRUGS (1)
  1. PAXLOVID [Suspect]
     Active Substance: NIRMATRELVIR\RITONAVIR
     Indication: COVID-19
     Dosage: OTHER QUANTITY : 30 TABLET(S);?FREQUENCY : TWICE A DAY;?
     Route: 048

REACTIONS (6)
  - SARS-CoV-2 test positive [None]
  - Rhinorrhoea [None]
  - Pyrexia [None]
  - Oropharyngeal pain [None]
  - Cough [None]
  - Rebound effect [None]

NARRATIVE: CASE EVENT DATE: 20220712
